FAERS Safety Report 6030465-3 (Version None)
Quarter: 2008Q4

REPORT INFORMATION
  Report Type: 
  Country: None (occurrence: None)
  Receive Date: 20081222
  Receipt Date: 20080908
  Transmission Date: 20090506
  Serious: Yes (Hospitalization, Other)
  Sender: FDA-Public Use
  Company Number: US-WYE-H05440408

PATIENT
  Age: 49 Year
  Sex: Female

DRUGS (1)
  1. PRISTIQ [Suspect]
     Indication: MAJOR DEPRESSION
     Dosage: 50 MG 1X PER 1 DAY, ORAL
     Route: 048
     Dates: start: 20080626, end: 20080626

REACTIONS (1)
  - SEROTONIN SYNDROME [None]
